FAERS Safety Report 25321041 (Version 2)
Quarter: 2025Q3

REPORT INFORMATION
  Report Type: Spontaneous
  Country: US (occurrence: US)
  Receive Date: 20250515
  Receipt Date: 20250903
  Transmission Date: 20251020
  Serious: No
  Sender: SANOFI AVENTIS
  Company Number: US-SA-2025SA137594

PATIENT
  Age: 39 Year
  Sex: Male

DRUGS (1)
  1. DUPIXENT [Suspect]
     Active Substance: DUPILUMAB
     Indication: Dermatitis
     Dosage: 200 MG, QOW
     Route: 058

REACTIONS (6)
  - Pruritus [Unknown]
  - Skin exfoliation [Unknown]
  - Alopecia [Unknown]
  - Injection site pain [Unknown]
  - Injection site bruising [Unknown]
  - Off label use [Unknown]
